FAERS Safety Report 9297432 (Version 1)
Quarter: 2013Q2

REPORT INFORMATION
  Report Type: Spontaneous
  Country: US (occurrence: None)
  Receive Date: 20130517
  Receipt Date: 20130517
  Transmission Date: 20140414
  Serious: Yes (Other)
  Sender: FDA-Public Use
  Company Number: None

PATIENT
  Age: 81 Year
  Sex: Female

DRUGS (1)
  1. FORTEO 600 MCG/2.4ML PEN ELI LILLY + COMPANY [Suspect]
     Indication: OSTEOPOROSIS
     Dosage: SQ

REACTIONS (2)
  - Fall [None]
  - Wrist fracture [None]
